FAERS Safety Report 17994057 (Version 1)
Quarter: 2020Q3

REPORT INFORMATION
  Report Type: Spontaneous
  Country: US (occurrence: US)
  Receive Date: 20200707
  Receipt Date: 20200707
  Transmission Date: 20201103
  Serious: Yes (Hospitalization)
  Sender: FDA-Public Use
  Company Number: None

PATIENT
  Age: 24 Year
  Sex: Male
  Weight: 75.6 kg

DRUGS (7)
  1. CHLORPROMAZINE. [Suspect]
     Active Substance: CHLORPROMAZINE
     Indication: AGITATION
     Route: 030
     Dates: start: 20200628, end: 20200628
  2. BENZTROPINE 0.5MG [Concomitant]
     Dates: start: 20200617, end: 20200628
  3. DIVALPROEX ER 500MG [Concomitant]
     Active Substance: DIVALPROEX SODIUM
     Dates: start: 20200626, end: 20200628
  4. OLANZAPINE. [Suspect]
     Active Substance: OLANZAPINE
     Indication: AGGRESSION
     Route: 030
     Dates: start: 20200628, end: 20200628
  5. RISPERIDONE 2MG [Suspect]
     Active Substance: RISPERIDONE
     Dates: start: 20200626, end: 20200628
  6. GABAPENTIN 600MG [Concomitant]
     Active Substance: GABAPENTIN
     Dates: start: 20200617, end: 20200628
  7. CHLORPROMAZINE. [Suspect]
     Active Substance: CHLORPROMAZINE
     Indication: AGGRESSION
     Route: 030
     Dates: start: 20200628, end: 20200628

REACTIONS (4)
  - Neuroleptic malignant syndrome [None]
  - Pyrexia [None]
  - Tachycardia [None]
  - Rhabdomyolysis [None]

NARRATIVE: CASE EVENT DATE: 20200629
